FAERS Safety Report 7488769-3 (Version None)
Quarter: 2011Q2

REPORT INFORMATION
  Report Type: 
  Country: None (occurrence: None)
  Receive Date: 20110518
  Receipt Date: 20110513
  Transmission Date: 20111010
  Serious: Yes (Hospitalization)
  Sender: FDA-Public Use
  Company Number: US-B.I. PHARMACEUTICALS,INC./RIDGEFIELD-2011-BP-13053BP

PATIENT

DRUGS (3)
  1. PRADAXA [Suspect]
  2. 4 OTHER MEDICATIONS [Concomitant]
  3. PRADAXA [Suspect]

REACTIONS (1)
  - PANCREATITIS RELAPSING [None]
